FAERS Safety Report 21376518 (Version 1)
Quarter: 2022Q3

REPORT INFORMATION
  Report Type: Spontaneous
  Country: BY (occurrence: BY)
  Receive Date: 20220926
  Receipt Date: 20220926
  Transmission Date: 20221027
  Serious: Yes (Hospitalization, Other)
  Sender: FDA-Public Use
  Company Number: BY-BAYER-2022P014656

PATIENT
  Age: 23 Year
  Sex: Female

DRUGS (5)
  1. YAZ [Suspect]
     Active Substance: DROSPIRENONE\ETHINYL ESTRADIOL
     Indication: Polycystic ovaries
     Dosage: 1 DF, QD
     Route: 048
     Dates: start: 20150101, end: 20200326
  2. METFORMIN [Concomitant]
     Active Substance: METFORMIN HYDROCHLORIDE
  3. IBUPROFEN [Concomitant]
     Active Substance: IBUPROFEN
  4. GLUCOPHAGE [Concomitant]
     Active Substance: METFORMIN HYDROCHLORIDE
     Indication: Weight decreased
     Dosage: 1 DF, QD
     Dates: start: 20200321
  5. MIG [Concomitant]
     Dosage: 1 DF, QD
     Dates: start: 20200323

REACTIONS (11)
  - Superior sagittal sinus thrombosis [Recovering/Resolving]
  - Cerebral infarction [Recovering/Resolving]
  - Extravasation blood [Recovering/Resolving]
  - Seizure [Recovering/Resolving]
  - Upper motor neurone lesion [Recovering/Resolving]
  - Loss of consciousness [Recovering/Resolving]
  - Headache [Recovering/Resolving]
  - Vomiting [Recovering/Resolving]
  - Hypoaesthesia [Recovering/Resolving]
  - Myoclonus [Recovering/Resolving]
  - Off label use [None]

NARRATIVE: CASE EVENT DATE: 20200323
